FAERS Safety Report 6902865-8 (Version None)
Quarter: 2010Q3

REPORT INFORMATION
  Report Type: 
  Country: None (occurrence: None)
  Receive Date: 20100803
  Receipt Date: 20080708
  Transmission Date: 20110219
  Serious: No
  Sender: FDA-Public Use
  Company Number: US-PFIZER INC-2008043879

PATIENT
  Sex: Female
  Weight: 68.9 kg

DRUGS (2)
  1. LYRICA [Suspect]
     Indication: FIBROMYALGIA
     Dates: start: 20070101, end: 20080501
  2. ANTIDEPRESSANTS [Concomitant]

REACTIONS (1)
  - WEIGHT INCREASED [None]
